FAERS Safety Report 12481026 (Version 2)
Quarter: 2016Q3

REPORT INFORMATION
  Report Type: Spontaneous
  Country: JP (occurrence: JP)
  Receive Date: 20160620
  Receipt Date: 20160815
  Transmission Date: 20161109
  Serious: Yes (Hospitalization, Other)
  Sender: FDA-Public Use
  Company Number: JP-PFIZER INC-2016299898

PATIENT
  Age: 74 Year
  Sex: Female

DRUGS (1)
  1. LYRICA [Suspect]
     Active Substance: PREGABALIN
     Indication: PAIN
     Dosage: 75 MG, 1X/DAY
     Route: 048
     Dates: start: 20160602, end: 20160606

REACTIONS (5)
  - Generalised oedema [Unknown]
  - Oedema peripheral [Unknown]
  - Pleural effusion [Unknown]
  - Supraventricular tachycardia [Recovered/Resolved]
  - Pericardial effusion [Unknown]

NARRATIVE: CASE EVENT DATE: 20160606
